FAERS Safety Report 9177890 (Version 2)
Quarter: 2013Q2

REPORT INFORMATION
  Report Type: Spontaneous
  Country: US (occurrence: US)
  Receive Date: 20130321
  Receipt Date: 20130417
  Transmission Date: 20140414
  Serious: No
  Sender: FDA-Public Use
  Company Number: US-PFIZER INC-2013093307

PATIENT
  Age: 54 Year
  Sex: Female
  Weight: 56 kg

DRUGS (9)
  1. LYRICA [Suspect]
     Indication: NEURALGIA
     Dosage: 150 MG, 3X/DAY
     Route: 048
     Dates: start: 201302
  2. LYRICA [Suspect]
     Indication: LUMBAR RADICULOPATHY
     Dosage: 150 MG, 2X/DAY
     Route: 048
     Dates: start: 201303
  3. LYRICA [Suspect]
     Indication: PAIN
  4. NORVASC [Concomitant]
     Indication: AORTIC VALVE INCOMPETENCE
     Dosage: 10 MG, 1X/DAY
  5. ESTRADIOL [Concomitant]
     Indication: MENOPAUSE
     Dosage: UNK
  6. MORPHINE [Concomitant]
     Indication: PAIN
     Dosage: UNK
  7. PERCOCET [Concomitant]
     Dosage: UNK
  8. FIORICET [Concomitant]
     Indication: HEADACHE
  9. IMITREX [Concomitant]
     Indication: HEADACHE

REACTIONS (3)
  - Dry skin [Recovered/Resolved]
  - Alopecia [Recovered/Resolved]
  - Mood swings [Recovered/Resolved]
